FAERS Safety Report 21047927 (Version 2)
Quarter: 2022Q3

REPORT INFORMATION
  Report Type: Spontaneous
  Country: US (occurrence: US)
  Receive Date: 20220706
  Receipt Date: 20220725
  Transmission Date: 20221026
  Serious: No
  Sender: FDA-Public Use
  Company Number: US-SUNOVION-2022SUN001935

PATIENT
  Sex: Female

DRUGS (3)
  1. KYNMOBI [Suspect]
     Active Substance: APOMORPHINE HYDROCHLORIDE
     Indication: Parkinson^s disease
     Dosage: 15 MG
     Route: 060
  2. ROPINIROLE [Concomitant]
     Active Substance: ROPINIROLE
     Dosage: 6 MG, QD (2MG 3 TABLETS QD AT 9:00 PM)
     Route: 065
  3. CARBIDOPA\LEVODOPA [Concomitant]
     Active Substance: CARBIDOPA\LEVODOPA
     Dosage: 25/100, QID
     Route: 065

REACTIONS (2)
  - Middle insomnia [Recovered/Resolved]
  - Nausea [Recovered/Resolved]
